FAERS Safety Report 6383087-9 (Version None)
Quarter: 2009Q3

REPORT INFORMATION
  Report Type: 
  Country: None (occurrence: None)
  Receive Date: 20090928
  Receipt Date: 20090915
  Transmission Date: 20100115
  Serious: Yes (Other)
  Sender: FDA-Public Use
  Company Number: 233329K09USA

PATIENT
  Age: 39 Year
  Sex: Female
  Weight: 68 kg

DRUGS (6)
  1. REBIF [Suspect]
     Indication: MULTIPLE SCLEROSIS
     Dosage: 44 MCG, 3 IN 1 WEEKS, SUBCUTANEOUS
     Route: 058
     Dates: start: 20070709
  2. LYRICA [Concomitant]
  3. TOPAMAX [Concomitant]
  4. CELEBREX [Concomitant]
  5. PROVIGIL [Concomitant]
  6. PROZAC [Concomitant]

REACTIONS (6)
  - CONDITION AGGRAVATED [None]
  - DYSPNOEA [None]
  - FLUID RETENTION [None]
  - HYPERTENSION [None]
  - LYMPHADENOPATHY [None]
  - MULTIPLE SCLEROSIS [None]
